FAERS Safety Report 9145301 (Version 1)
Quarter: 2013Q1

REPORT INFORMATION
  Report Type: Spontaneous
  Country: US (occurrence: None)
  Receive Date: 20130226
  Receipt Date: 20130226
  Transmission Date: 20140127
  Serious: No
  Sender: FDA-Public Use
  Company Number: None

PATIENT
  Age: 36 Year
  Sex: Female
  Weight: 60.78 kg

DRUGS (1)
  1. BUPROPION [Suspect]
     Indication: MAJOR DEPRESSION
     Dosage: ~ 2 MONTHS

REACTIONS (4)
  - Product substitution issue [None]
  - Drug effect decreased [None]
  - Feeling jittery [None]
  - Depression [None]
